FAERS Safety Report 10347116 (Version 1)
Quarter: 2014Q3

REPORT INFORMATION
  Report Type: Spontaneous
  Country: ES (occurrence: ES)
  Receive Date: 20140729
  Receipt Date: 20140729
  Transmission Date: 20150326
  Serious: Yes (Hospitalization, Other)
  Sender: FDA-Public Use
  Company Number: ES-JNJFOC-20140713434

PATIENT
  Sex: Male

DRUGS (2)
  1. USTEKINUMAB [Suspect]
     Active Substance: USTEKINUMAB
     Indication: PSORIASIS
     Route: 058
  2. METHOTREXATE [Suspect]
     Active Substance: METHOTREXATE
     Indication: PSORIASIS
     Route: 065

REACTIONS (12)
  - Liver injury [Unknown]
  - Dysuria [Unknown]
  - Pulmonary oedema [Unknown]
  - Decreased appetite [Unknown]
  - Fatigue [Unknown]
  - Night sweats [Unknown]
  - Diarrhoea [Unknown]
  - Drug ineffective [Unknown]
  - Tremor [Unknown]
  - Weight decreased [Unknown]
  - Respiratory tract infection [Recovering/Resolving]
  - Anaemia [Unknown]
